FAERS Safety Report 7492374-2 (Version None)
Quarter: 2011Q2

REPORT INFORMATION
  Report Type: 
  Country: None (occurrence: None)
  Receive Date: 20110519
  Receipt Date: 20110502
  Transmission Date: 20111010
  Serious: Yes (Other)
  Sender: FDA-Public Use
  Company Number: US-BAYER-200936819NA

PATIENT
  Age: 35 Year
  Sex: Female
  Weight: 65 kg

DRUGS (5)
  1. YAZ [Suspect]
     Indication: CONTRACEPTION
     Route: 048
     Dates: start: 20080501, end: 20090901
  2. YASMIN [Suspect]
     Indication: CONTRACEPTION
     Route: 048
     Dates: start: 20080401, end: 20090915
  3. ACIPHEX [Concomitant]
     Indication: PRODUCT USED FOR UNKNOWN INDICATION
  4. SINEQUAN [Concomitant]
     Indication: PRODUCT USED FOR UNKNOWN INDICATION
  5. DOXEPIN [Concomitant]
     Dosage: 20 MG, UNK
     Dates: start: 20090714

REACTIONS (19)
  - CHEST PAIN [None]
  - ABDOMINAL DISTENSION [None]
  - DIARRHOEA [None]
  - CONSTIPATION [None]
  - DIZZINESS [None]
  - PALPITATIONS [None]
  - SYNCOPE [None]
  - VOMITING [None]
  - CHILLS [None]
  - GALLBLADDER DISORDER [None]
  - DYSPEPSIA [None]
  - NAUSEA [None]
  - OESOPHAGITIS [None]
  - HIATUS HERNIA [None]
  - ABDOMINAL PAIN UPPER [None]
  - GASTRITIS [None]
  - DYSPNOEA [None]
  - CHOLECYSTITIS CHRONIC [None]
  - PYREXIA [None]
